FAERS Safety Report 7363246-9 (Version None)
Quarter: 2011Q1

REPORT INFORMATION
  Report Type: 
  Country: None (occurrence: None)
  Receive Date: 20110321
  Receipt Date: 20110221
  Transmission Date: 20110831
  Serious: No
  Sender: FDA-Public Use
  Company Number: US-B.I. PHARMACEUTICALS,INC./RIDGEFIELD-2011-BP-00546BP

PATIENT
  Age: 29 Year
  Sex: Female

DRUGS (3)
  1. PRADAXA [Suspect]
     Dosage: 300 MG
     Dates: end: 20110104
  2. PLAVIX [Concomitant]
  3. ASPIRIN [Concomitant]

REACTIONS (3)
  - ABDOMINAL DISCOMFORT [None]
  - VOMITING [None]
  - NAUSEA [None]
